FAERS Safety Report 25820604 (Version 1)
Quarter: 2025Q3

REPORT INFORMATION
  Report Type: Spontaneous
  Country: CN (occurrence: CN)
  Receive Date: 20250919
  Receipt Date: 20250919
  Transmission Date: 20251021
  Serious: Yes (Hospitalization, Other)
  Sender: BEIGENE
  Company Number: CN-BEIGENE-BGN-2025-015822

PATIENT
  Age: 40 Year
  Weight: 71 kg

DRUGS (12)
  1. TISLELIZUMAB [Suspect]
     Active Substance: TISLELIZUMAB
     Indication: Lung neoplasm malignant
  2. TISLELIZUMAB [Suspect]
     Active Substance: TISLELIZUMAB
     Route: 041
  3. TISLELIZUMAB [Suspect]
     Active Substance: TISLELIZUMAB
     Route: 041
  4. TISLELIZUMAB [Suspect]
     Active Substance: TISLELIZUMAB
  5. DOCETAXEL [Suspect]
     Active Substance: DOCETAXEL
     Indication: Lung neoplasm malignant
  6. DOCETAXEL [Suspect]
     Active Substance: DOCETAXEL
     Route: 041
  7. DOCETAXEL [Suspect]
     Active Substance: DOCETAXEL
     Route: 041
  8. DOCETAXEL [Suspect]
     Active Substance: DOCETAXEL
  9. CISPLATIN [Suspect]
     Active Substance: CISPLATIN
     Indication: Lung neoplasm malignant
  10. CISPLATIN [Suspect]
     Active Substance: CISPLATIN
     Route: 041
  11. CISPLATIN [Suspect]
     Active Substance: CISPLATIN
     Route: 041
  12. CISPLATIN [Suspect]
     Active Substance: CISPLATIN

REACTIONS (2)
  - Myelosuppression [Recovering/Resolving]
  - Diarrhoea [Recovering/Resolving]
